FAERS Safety Report 10383886 (Version 2)
Quarter: 2014Q3

REPORT INFORMATION
  Report Type: Spontaneous
  Country: US (occurrence: US)
  Receive Date: 20140814
  Receipt Date: 20140910
  Transmission Date: 20150326
  Serious: Yes (Hospitalization, Other)
  Sender: FDA-Public Use
  Company Number: US-JNJFOC-20140803649

PATIENT
  Sex: Male
  Weight: 70.31 kg

DRUGS (1)
  1. IMODIUM [Suspect]
     Active Substance: LOPERAMIDE HYDROCHLORIDE
     Indication: EUPHORIC MOOD
     Dosage: 60 PILLS
     Route: 048

REACTIONS (6)
  - Drug abuse [Unknown]
  - Intentional overdose [Unknown]
  - Off label use [Unknown]
  - Coma [Unknown]
  - Lung disorder [Unknown]
  - Drug dependence [Unknown]
